FAERS Safety Report 6328718-4 (Version None)
Quarter: 2009Q3

REPORT INFORMATION
  Report Type: 
  Country: None (occurrence: None)
  Receive Date: 20090825
  Receipt Date: 20090825
  Transmission Date: 20100115
  Serious: Yes (Other)
  Sender: FDA-Public Use
  Company Number: None

PATIENT
  Sex: Female
  Weight: 88.4514 kg

DRUGS (1)
  1. CHANTIX [Suspect]
     Indication: TOBACCO USER
     Dosage: 0.5MG BID PO
     Route: 048
     Dates: start: 20090423, end: 20090430

REACTIONS (5)
  - AGGRESSION [None]
  - DEPRESSION [None]
  - HOSTILITY [None]
  - SUICIDAL IDEATION [None]
  - WEIGHT INCREASED [None]
